FAERS Safety Report 5649340-9 (Version None)
Quarter: 2008Q1

REPORT INFORMATION
  Report Type: 
  Country: None (occurrence: None)
  Receive Date: 20080304
  Receipt Date: 20080115
  Transmission Date: 20080703
  Serious: No
  Sender: FDA-Public Use
  Company Number: US-BAYER-200811567NA

PATIENT
  Age: 47 Year
  Sex: Female
  Weight: 57 kg

DRUGS (2)
  1. ULTRAVIST 300 [Suspect]
     Indication: COMPUTERISED TOMOGRAM
     Dosage: TOTAL DAILY DOSE: 120 ML  UNIT DOSE: 120 ML
     Route: 042
     Dates: start: 20080114, end: 20080114
  2. ULTRAVIST 300 [Suspect]
     Dosage: TOTAL DAILY DOSE: 120 ML  UNIT DOSE: 120 ML
     Route: 042
     Dates: start: 20080114, end: 20080114

REACTIONS (2)
  - DYSPNOEA [None]
  - PRURITUS [None]
